FAERS Safety Report 22219367 (Version 1)
Quarter: 2023Q2

REPORT INFORMATION
  Report Type: Spontaneous
  Country: US (occurrence: None)
  Receive Date: 20230416
  Receipt Date: 20230416
  Transmission Date: 20230721
  Serious: Yes (Disabling)
  Sender: FDA-Public Use
  Company Number: None

PATIENT
  Age: 43 Year
  Sex: Male
  Weight: 87.75 kg

DRUGS (2)
  1. CIPRO [Suspect]
     Active Substance: CIPROFLOXACIN HYDROCHLORIDE
     Indication: Prostatitis
     Dates: start: 20221031
  2. SYNTHROID [Concomitant]
     Active Substance: LEVOTHYROXINE SODIUM

REACTIONS (8)
  - Cognitive disorder [None]
  - Myalgia [None]
  - Arthralgia [None]
  - Brain fog [None]
  - Dizziness [None]
  - Nausea [None]
  - Gait disturbance [None]
  - Neuralgia [None]

NARRATIVE: CASE EVENT DATE: 20221226
